FAERS Safety Report 8389968 (Version 2)
Quarter: 2012Q4

REPORT INFORMATION
  Report Type: 
  Country: US (occurrence: US)
  Receive Date: 20111227
  Receipt Date: 20121226
  Transmission Date: 20130627
  Serious: Yes (Other)
  Sender: FDA-Public Use
  Company Number: PHEH2011US008870

PATIENT
  Age: 42 Year
  Sex: Female

DRUGS (3)
  1. GILENYA [Suspect]
     Indication: MULTIPLE SCLEROSIS
     Dosage: 1 DF, daily
     Route: 048
     Dates: start: 20111103, end: 20120701
  2. GILENYA [Suspect]
     Dosage: 0.5 mg, QD
     Route: 048
     Dates: start: 20121115
  3. CYMBALTA [Concomitant]

REACTIONS (5)
  - Weight increased [Recovering/Resolving]
  - Visual acuity reduced [Recovering/Resolving]
  - Fatigue [Unknown]
  - Gait disturbance [Recovering/Resolving]
  - Incontinence [Recovering/Resolving]
